FAERS Safety Report 9644051 (Version 3)
Quarter: 2013Q4

REPORT INFORMATION
  Report Type: Spontaneous
  Country: CH (occurrence: CH)
  Receive Date: 20131024
  Receipt Date: 20131218
  Transmission Date: 20140711
  Serious: Yes (Hospitalization, Other)
  Sender: FDA-Public Use
  Company Number: CH-CELGENEUS-151-21880-13102645

PATIENT
  Age: 76 Year
  Sex: Female

DRUGS (3)
  1. REVLIMID [Suspect]
     Indication: 5Q MINUS SYNDROME
     Dosage: 10 MILLIGRAM
     Route: 048
     Dates: start: 20130515, end: 20130525
  2. REVLIMID [Suspect]
     Route: 048
     Dates: start: 20130626
  3. REVLIMID [Suspect]
     Route: 048
     Dates: start: 20070626, end: 20090227

REACTIONS (6)
  - Anaemia [Recovered/Resolved]
  - Meningioma benign [Not Recovered/Not Resolved]
  - Confusional state [Recovered/Resolved]
  - Aphasia [Recovered/Resolved]
  - Muscle spasms [Recovered/Resolved]
  - Muscular weakness [Recovered/Resolved]
